FAERS Safety Report 24330360 (Version 1)
Quarter: 2024Q3

REPORT INFORMATION
  Report Type: Spontaneous
  Country: CN (occurrence: CN)
  Receive Date: 20240918
  Receipt Date: 20240918
  Transmission Date: 20241016
  Serious: Yes (Hospitalization)
  Sender: NOVO NORDISK
  Company Number: None

PATIENT
  Age: 53 Year
  Sex: Female
  Weight: 49 kg

DRUGS (2)
  1. VICTOZA [Suspect]
     Active Substance: LIRAGLUTIDE
     Dosage: UNK (RECHALLENGE DOSE)
     Route: 058
  2. VICTOZA [Suspect]
     Active Substance: LIRAGLUTIDE
     Indication: Type 2 diabetes mellitus
     Dosage: 0.6 MG, QD
     Route: 058
     Dates: start: 20240725, end: 20240727

REACTIONS (6)
  - Palpitations [Recovering/Resolving]
  - Vomiting [Recovering/Resolving]
  - Blood pressure increased [Unknown]
  - Dyspnoea [Unknown]
  - Nausea [Recovering/Resolving]
  - Decreased appetite [Unknown]

NARRATIVE: CASE EVENT DATE: 20240726
